FAERS Safety Report 5904211-5 (Version None)
Quarter: 2008Q3

REPORT INFORMATION
  Report Type: 
  Country: None (occurrence: None)
  Receive Date: 20080930
  Receipt Date: 20080930
  Transmission Date: 20090109
  Serious: Yes (Other)
  Sender: FDA-Public Use
  Company Number: None

PATIENT
  Age: 52 Year
  Sex: Female
  Weight: 79.3795 kg

DRUGS (2)
  1. LIPITOR [Suspect]
  2. NIASPAN [Suspect]

REACTIONS (3)
  - ASTHENIA [None]
  - DIABETES MELLITUS [None]
  - MYALGIA [None]
